FAERS Safety Report 24194795 (Version 1)
Quarter: 2024Q3

REPORT INFORMATION
  Report Type: Spontaneous
  Country: FR (occurrence: FR)
  Receive Date: 20240809
  Receipt Date: 20240809
  Transmission Date: 20241016
  Serious: Yes (Other)
  Sender: PFIZER
  Company Number: None

PATIENT
  Age: 59 Year
  Sex: Female

DRUGS (15)
  1. PEMETREXED [Suspect]
     Active Substance: PEMETREXED
     Indication: Lung adenocarcinoma stage IV
     Dosage: 500 MG/M2, 1X/DAY
     Route: 042
     Dates: start: 20231215, end: 20231215
  2. PEMETREXED [Suspect]
     Active Substance: PEMETREXED
     Dosage: 500 MG/M2, 1X/DAY
     Route: 042
     Dates: start: 20240103, end: 20240103
  3. PEMETREXED [Suspect]
     Active Substance: PEMETREXED
     Dosage: 500 MG/M2, 1X/DAY
     Route: 042
     Dates: start: 20240124, end: 20240124
  4. PEMETREXED [Suspect]
     Active Substance: PEMETREXED
     Dosage: 500 MG/M2, 1X/DAY
     Route: 042
     Dates: start: 20240214, end: 20240214
  5. PEMETREXED [Suspect]
     Active Substance: PEMETREXED
     Dosage: 500 MG/M2, 1X/DAY
     Route: 042
     Dates: start: 20240306, end: 20240306
  6. TAGRISSO [Concomitant]
     Active Substance: OSIMERTINIB
     Indication: Lung adenocarcinoma stage IV
     Dosage: 160 MG, 1X/DAY
     Route: 048
     Dates: start: 20231128
  7. INNOHEP [Concomitant]
     Active Substance: TINZAPARIN SODIUM
     Indication: Deep vein thrombosis
     Dosage: 11000 IU, 1X/DAY
     Route: 058
     Dates: start: 20231208
  8. LEUCOVORIN [Concomitant]
     Active Substance: LEUCOVORIN\LEUCOVORIN CALCIUM
     Dosage: 0.8 MG, 1X/DAY
     Route: 048
     Dates: start: 20231128
  9. XGEVA [Concomitant]
     Active Substance: DENOSUMAB
     Dosage: 120 MG, EVERY 28 DAYS
     Route: 058
     Dates: start: 20231128
  10. CARBOPLATIN [Concomitant]
     Active Substance: CARBOPLATIN
     Indication: Lung adenocarcinoma stage IV
     Dosage: AUC 5 (1 ARBITARY UNIT)
     Route: 042
     Dates: start: 20240124, end: 20240124
  11. CARBOPLATIN [Concomitant]
     Active Substance: CARBOPLATIN
     Dosage: AUC 5 (1 ARBITARY UNIT)
     Route: 042
     Dates: start: 20240214, end: 20240214
  12. CARBOPLATIN [Concomitant]
     Active Substance: CARBOPLATIN
     Dosage: AUC 5 (1 ARBITARY UNIT)
     Route: 042
     Dates: start: 20231215, end: 20231215
  13. CARBOPLATIN [Concomitant]
     Active Substance: CARBOPLATIN
     Dosage: AUC 5 (1 ARBITARY UNIT)
     Route: 042
     Dates: start: 20240103, end: 20240103
  14. HYDROXOCOBALAMIN ACETATE [Concomitant]
     Active Substance: HYDROXOCOBALAMIN ACETATE
     Dosage: 1 DF, MONTHLY
     Route: 048
     Dates: start: 20231128
  15. CHOLECALCIFEROL [Concomitant]
     Active Substance: CHOLECALCIFEROL
     Dosage: 1 DF, MONTHLY
     Route: 048
     Dates: start: 20231128

REACTIONS (1)
  - Dermo-hypodermitis [Recovering/Resolving]

NARRATIVE: CASE EVENT DATE: 20240103
